FAERS Safety Report 6145736-X (Version None)
Quarter: 2009Q2

REPORT INFORMATION
  Report Type: 
  Country: None (occurrence: None)
  Receive Date: 20090406
  Receipt Date: 20090406
  Transmission Date: 20091009
  Serious: No
  Sender: FDA-Public Use
  Company Number: None

PATIENT
  Age: 45 Year
  Sex: Male
  Weight: 95 kg

DRUGS (7)
  1. LOVENOX [Suspect]
     Indication: THROMBOSIS PROPHYLAXIS
     Dosage: 40 MG QD SUB-Q
     Route: 058
     Dates: start: 20090308, end: 20090314
  2. FLAGYL [Concomitant]
  3. MEROPENUM [Concomitant]
  4. VANCOMYCIN HCL [Concomitant]
  5. MS CONTIN [Concomitant]
  6. NEUPOGEN [Concomitant]
  7. DILAUDID [Concomitant]

REACTIONS (1)
  - PLATELET COUNT DECREASED [None]
